FAERS Safety Report 21771770 (Version 1)
Quarter: 2022Q4

REPORT INFORMATION
  Report Type: Spontaneous
  Country: SI (occurrence: SI)
  Receive Date: 20221223
  Receipt Date: 20221223
  Transmission Date: 20230112
  Serious: Yes (Other)
  Sender: FDA-Public Use
  Company Number: SI-002147023-NVSC2022SI292359

PATIENT
  Age: 49 Year
  Sex: Female

DRUGS (10)
  1. KISQALI [Interacting]
     Active Substance: RIBOCICLIB
     Indication: Breast cancer metastatic
     Dosage: 600 MG
     Route: 065
     Dates: start: 201709
  2. KISQALI [Interacting]
     Active Substance: RIBOCICLIB
     Dosage: 400 MG
     Route: 065
     Dates: start: 201808
  3. LETROZOLE [Suspect]
     Active Substance: LETROZOLE
     Indication: Breast cancer metastatic
     Dosage: 2.5 MG
     Route: 065
     Dates: start: 201709
  4. ESCITALOPRAM [Interacting]
     Active Substance: ESCITALOPRAM OXALATE
     Indication: Product used for unknown indication
     Dosage: 1 DOSAGE FORM
     Route: 065
  5. IRON [Concomitant]
     Active Substance: IRON
     Indication: Product used for unknown indication
     Dosage: UNK
     Route: 048
     Dates: start: 201709
  6. CA [Concomitant]
     Indication: Product used for unknown indication
     Dosage: 1 G
     Route: 065
     Dates: start: 201709
  7. VITAMIN D NOS [Concomitant]
     Active Substance: VITAMIN D NOS
     Indication: Product used for unknown indication
     Dosage: 7 DRP, QD (7 GTT PER DAY)
     Route: 065
     Dates: start: 201709
  8. DENOSUMAB [Concomitant]
     Active Substance: DENOSUMAB
     Indication: Product used for unknown indication
     Dosage: 120 MG, QMO
     Route: 058
     Dates: start: 201801, end: 201912
  9. ECYTARA [Concomitant]
     Indication: Product used for unknown indication
     Dosage: 1 DOSAGE FORM, QD
     Route: 065
  10. GOSERELIN [Concomitant]
     Active Substance: GOSERELIN
     Indication: Breast cancer metastatic
     Dosage: 3.6 MG
     Route: 065
     Dates: start: 201708

REACTIONS (11)
  - Neutropenia [Unknown]
  - Lymphadenopathy [Unknown]
  - Breast mass [Unknown]
  - Disturbance in attention [Recovering/Resolving]
  - Chest pain [Recovering/Resolving]
  - Body temperature fluctuation [Unknown]
  - Migraine [Recovering/Resolving]
  - Mood swings [Recovering/Resolving]
  - Arthralgia [Recovering/Resolving]
  - Headache [Recovering/Resolving]
  - Tooth disorder [Unknown]
